FAERS Safety Report 5670441-3 (Version None)
Quarter: 2008Q1

REPORT INFORMATION
  Report Type: 
  Country: None (occurrence: None)
  Receive Date: 20080318
  Receipt Date: 20080304
  Transmission Date: 20080703
  Serious: Yes (Hospitalization)
  Sender: FDA-Public Use
  Company Number: FR-ELI_LILLY_AND_COMPANY-FR200803000410

PATIENT
  Age: 75 Year
  Sex: Female

DRUGS (9)
  1. GEMZAR [Suspect]
     Indication: GALLBLADDER CANCER
     Dosage: 1000 MG/M2, OTHER
     Route: 042
     Dates: start: 20070925, end: 20080103
  2. AMARYL [Concomitant]
     Dosage: UNK, UNKNOWN
     Route: 065
  3. DIGOXIN [Concomitant]
     Dosage: UNK, UNKNOWN
     Route: 065
  4. LASILIX [Concomitant]
     Dosage: UNK, UNKNOWN
     Route: 065
  5. SECTRAL [Concomitant]
     Dosage: UNK, UNKNOWN
     Route: 065
  6. TEMESTA [Concomitant]
     Dosage: UNK, UNKNOWN
     Route: 065
  7. ATARAX [Concomitant]
     Dosage: UNK, UNKNOWN
     Route: 065
  8. POTASSIUM CHLORIDE [Concomitant]
     Dosage: UNK, UNKNOWN
     Route: 065
  9. FUMAFER [Concomitant]
     Dosage: UNK, UNKNOWN
     Route: 065

REACTIONS (5)
  - ACUTE RESPIRATORY DISTRESS SYNDROME [None]
  - CARDIAC FAILURE [None]
  - PNEUMONIA [None]
  - PROTHROMBIN LEVEL DECREASED [None]
  - TACHYCARDIA [None]
